FAERS Safety Report 4435730-9 (Version None)
Quarter: 2004Q3

REPORT INFORMATION
  Report Type: 
  Country: None (occurrence: None)
  Receive Date: 20040826
  Receipt Date: 20040816
  Transmission Date: 20050211
  Serious: Yes (Life-Threatening)
  Sender: FDA-Public Use
  Company Number: OMPQ-NO-0408S-1075

PATIENT
  Age: 7 Month
  Sex: Female
  Weight: 5 kg

DRUGS (1)
  1. OMNIPAQUE 180 [Suspect]
     Indication: CATHETER PLACEMENT
     Dosage: 40 ML, SINGLE, DOSE, I.A.
     Route: 013
     Dates: start: 20040730, end: 20040731

REACTIONS (9)
  - ACIDOSIS [None]
  - COAGULOPATHY [None]
  - DEPRESSED LEVEL OF CONSCIOUSNESS [None]
  - GRAND MAL CONVULSION [None]
  - HEPATIC FAILURE [None]
  - HEPATIC FUNCTION ABNORMAL [None]
  - HYPOGLYCAEMIA [None]
  - HYPOTENSION [None]
  - POST PROCEDURAL COMPLICATION [None]
